FAERS Safety Report 5907291-6 (Version None)
Quarter: 2008Q4

REPORT INFORMATION
  Report Type: 
  Country: None (occurrence: None)
  Receive Date: 20081003
  Receipt Date: 20080925
  Transmission Date: 20090506
  Serious: Yes (Hospitalization, Other)
  Sender: FDA-Public Use
  Company Number: GB-AVENTIS-200815228EU

PATIENT
  Age: 68 Year
  Sex: Female

DRUGS (32)
  1. LASIX [Suspect]
     Indication: CARDIAC FAILURE
     Route: 048
     Dates: start: 20071027, end: 20071031
  2. LASIX [Suspect]
     Route: 048
     Dates: start: 20071204
  3. AMBISOME [Suspect]
     Indication: FEBRILE NEUTROPENIA
     Route: 042
     Dates: start: 20071025, end: 20071205
  4. MEROPEN [Suspect]
     Indication: FUNGAL INFECTION
     Route: 042
     Dates: start: 20071014, end: 20071027
  5. VANCOMYCIN HYDROCHLORIDE [Suspect]
     Route: 042
     Dates: start: 20071019
  6. VANCOMYCIN HYDROCHLORIDE [Suspect]
     Route: 042
     Dates: end: 20071102
  7. TIENAM [Suspect]
     Dates: start: 20071028, end: 20071105
  8. PASIL [Suspect]
     Route: 042
     Dates: start: 20071105, end: 20071107
  9. TARGOCID [Suspect]
     Route: 042
     Dates: start: 20071102, end: 20071102
  10. TARGOCID [Suspect]
     Route: 042
     Dates: start: 20071103, end: 20071108
  11. BLOPRESS [Suspect]
     Route: 048
     Dates: end: 20071120
  12. BLOPRESS [Suspect]
     Route: 048
     Dates: start: 20071121
  13. AMARYL [Concomitant]
     Dosage: DOSE: UNK
     Route: 048
  14. ARTIST [Concomitant]
     Indication: CARDIAC FAILURE
     Route: 048
  15. CONCENTRATED HUMAN RED BLOOD CELLS [Concomitant]
     Route: 042
  16. CONCENTRATED HUMAN RED BLOOD CELLS [Concomitant]
     Route: 042
  17. CONCENTRATED HYMAN BLOOD PLATELET [Concomitant]
     Route: 042
  18. VFEND [Concomitant]
     Route: 048
     Dates: start: 20071023, end: 20071025
  19. VFEND [Concomitant]
     Route: 048
     Dates: start: 20071022, end: 20071023
  20. BROCIN                             /01650902/ [Concomitant]
     Route: 048
     Dates: start: 20071022, end: 20071116
  21. SLOW-K [Concomitant]
     Indication: HYPOKALAEMIA
     Route: 048
     Dates: start: 20071030, end: 20071108
  22. PRIMPERAN                          /00041901/ [Concomitant]
     Dates: start: 20071031, end: 20071205
  23. ASPARA K                           /00466902/ [Concomitant]
     Route: 048
     Dates: start: 20071101, end: 20071108
  24. MYSLEE [Concomitant]
     Route: 048
     Dates: start: 20071103, end: 20071103
  25. CRAVIT [Concomitant]
     Route: 048
     Dates: start: 20071108, end: 20071120
  26. DIFLUCAN [Concomitant]
     Dosage: DOSE: UNK
     Route: 048
     Dates: start: 20071012, end: 20071022
  27. FAMOTIDINE [Concomitant]
     Dosage: DOSE: UNK
     Dates: start: 20071202, end: 20071204
  28. VASOLAN                            /00014302/ [Concomitant]
     Indication: ATRIAL FIBRILLATION
     Dates: start: 20071116
  29. VASOLAN                            /00014302/ [Concomitant]
     Dates: start: 20071118
  30. CAPROCIN [Concomitant]
     Indication: ATRIAL FIBRILLATION
     Dates: start: 20071119
  31. HALFDIGOXIN [Concomitant]
     Indication: ATRIAL FIBRILLATION
     Dates: start: 20071203
  32. ALDACTONE [Concomitant]
     Indication: CARDIAC FAILURE
     Route: 048
     Dates: start: 20071203

REACTIONS (2)
  - HYPOKALAEMIA [None]
  - RENAL FAILURE [None]
